FAERS Safety Report 18526396 (Version 1)
Quarter: 2020Q4

REPORT INFORMATION
  Report Type: Report from Study
  Country: ZA (occurrence: ZA)
  Receive Date: 20201120
  Receipt Date: 20201120
  Transmission Date: 20210114
  Serious: Yes (Hospitalization)
  Sender: FDA-Public Use
  Company Number: NVSC2020ZA304851

PATIENT
  Sex: Male

DRUGS (3)
  1. ENALAPRIL [Suspect]
     Active Substance: ENALAPRIL
     Indication: CARDIAC FAILURE
     Dosage: 10 MG
     Route: 048
  2. ACETYLSALICYLIC ACID [Suspect]
     Active Substance: ASPIRIN
     Indication: CARDIAC FAILURE
     Dosage: 100 MG
     Route: 048
  3. ATORVASTATIN [Suspect]
     Active Substance: ATORVASTATIN
     Indication: CARDIAC FAILURE
     Dosage: 20 MG
     Route: 048

REACTIONS (7)
  - Ejection fraction decreased [Unknown]
  - Dizziness [Unknown]
  - Asthenia [Unknown]
  - Dyslipidaemia [Unknown]
  - Palpitations [Unknown]
  - Ventricular tachycardia [Unknown]
  - Product use in unapproved indication [Unknown]
